FAERS Safety Report 7014249-5 (Version None)
Quarter: 2010Q3

REPORT INFORMATION
  Report Type: 
  Country: None (occurrence: None)
  Receive Date: 20100927
  Receipt Date: 20100913
  Transmission Date: 20110219
  Serious: Yes (Life-Threatening, Hospitalization)
  Sender: FDA-Public Use
  Company Number: PHHY2010US60570

PATIENT
  Age: 24 Year
  Sex: Female
  Weight: 57 kg

DRUGS (13)
  1. NEORAL [Suspect]
     Indication: RENAL TRANSPLANT
     Dosage: 150 MG, DAILY
     Route: 048
     Dates: start: 19910210
  2. NEORAL [Suspect]
     Dosage: 125 MG, DAILY
     Route: 048
     Dates: start: 19990101
  3. IMURAN [Concomitant]
     Indication: RENAL TRANSPLANT
     Dosage: 100 MG, DAILY
     Route: 042
     Dates: start: 19910210
  4. IMURAN [Concomitant]
     Dosage: 25 MG DAILY
     Route: 042
     Dates: start: 20080121
  5. PREDNISONE TAB [Concomitant]
     Indication: PROPHYLAXIS AGAINST TRANSPLANT REJECTION
     Dosage: 50 MG, DAILY
     Route: 048
     Dates: start: 19910210
  6. PREDNISONE TAB [Concomitant]
     Dosage: 5 MG DAILY
     Route: 048
     Dates: start: 19960101
  7. ARANESP [Concomitant]
     Dosage: 25 MCG DAILY
     Dates: start: 20080630
  8. ALLOPURINOL [Concomitant]
     Indication: GOUT
     Dosage: 100 MG DAILY
     Dates: start: 20040101
  9. ACTONEL [Concomitant]
     Indication: OSTEOPOROSIS
     Dosage: 150 MG DAILY
     Dates: start: 20020101
  10. RAMIPRIL [Concomitant]
     Indication: HYPERTENSION
     Dosage: 5 MG DAILY
     Dates: start: 20020101
  11. RAMIPRIL [Concomitant]
     Dosage: 2.5 MG, DAILY
     Dates: start: 20080630
  12. SIMVASTATIN [Concomitant]
     Indication: BLOOD CHOLESTEROL INCREASED
     Dosage: 40 MG DAILY
     Dates: start: 20080101
  13. SIMVASTATIN [Concomitant]
     Dosage: 20 MG DAILY
     Dates: start: 20080630

REACTIONS (6)
  - CERVIX CARCINOMA [None]
  - CLOSTRIDIAL INFECTION [None]
  - MOLLUSCUM CONTAGIOSUM [None]
  - PHARYNGEAL OEDEMA [None]
  - PNEUMONIA [None]
  - SKIN CANCER [None]
